FAERS Safety Report 8564364-X (Version None)
Quarter: 2012Q3

REPORT INFORMATION
  Report Type: 
  Country: None (occurrence: None)
  Receive Date: 20120803
  Receipt Date: 20120725
  Transmission Date: 20120928
  Serious: Yes (Hospitalization)
  Sender: FDA-Public Use
  Company Number: GB-ASTELLAS-2012US006075

PATIENT
  Sex: Male
  Weight: 74 kg

DRUGS (16)
  1. BLINDED OSI-906 [Suspect]
     Indication: NON-SMALL CELL LUNG CANCER
     Dosage: 150 MG, BID
     Route: 048
     Dates: start: 20120515, end: 20120709
  2. AMLODIPINE [Concomitant]
     Indication: HYPERTENSION
     Dosage: UNK
     Route: 065
  3. DOXYCYCLINE HCL [Concomitant]
     Indication: RASH
     Dosage: UNK
     Route: 065
     Dates: start: 20120710, end: 20120714
  4. DOXYCYCLINE HCL [Concomitant]
  5. AVEENO [Concomitant]
     Indication: RASH
     Dosage: UNK
     Route: 065
     Dates: start: 20120501
  6. SIMVASTATIN [Concomitant]
     Indication: HYPERCHOLESTEROLAEMIA
     Dosage: UNK
     Route: 065
  7. CETIRIZINE [Concomitant]
     Indication: RASH PRURITIC
     Dosage: UNK
     Route: 065
     Dates: start: 20120626
  8. LOPERAMIDE [Concomitant]
     Indication: DIARRHOEA
     Dosage: UNK
     Route: 065
     Dates: start: 20120501
  9. DOXYCYCLINE HCL [Concomitant]
     Indication: LOWER RESPIRATORY TRACT INFECTION
     Dosage: UNK
     Route: 065
     Dates: start: 20120503, end: 20120510
  10. BLINDED OSI-906 [Suspect]
     Dosage: 150 MG, BID
     Route: 048
     Dates: start: 20120710
  11. CLINDAMYCIN [Concomitant]
     Indication: RASH
     Dosage: 1 %, UNKNOWN/D
     Route: 065
     Dates: start: 20120501
  12. CYCLIZINE [Concomitant]
     Indication: NAUSEA
     Dosage: UNK
     Route: 065
     Dates: start: 20120718
  13. ERLOTINIB HYDROCHLORIDE [Suspect]
     Indication: NON-SMALL CELL LUNG CANCER
     Dosage: 150 MG, UID/QD
     Route: 048
     Dates: start: 20120515
  14. DIPROBASE                          /01132701/ [Concomitant]
     Indication: RASH
     Dosage: UNK
     Route: 065
     Dates: start: 20120501
  15. SPIRIVA [Concomitant]
     Indication: BRONCHITIS
     Dosage: UNK
     Route: 065
  16. METOCLOPRAMIDE [Concomitant]
     Indication: PROPHYLAXIS OF NAUSEA AND VOMITING
     Dosage: UNK
     Route: 065
     Dates: start: 20120423, end: 20120717

REACTIONS (3)
  - DYSPHAGIA [None]
  - HYPERGLYCAEMIA [None]
  - TREMOR [None]
